FAERS Safety Report 7368525-7 (Version None)
Quarter: 2011Q1

REPORT INFORMATION
  Report Type: 
  Country: None (occurrence: None)
  Receive Date: 20110323
  Receipt Date: 20110309
  Transmission Date: 20110831
  Serious: Yes (Hospitalization)
  Sender: FDA-Public Use
  Company Number: BE-JNJFOC-20110305230

PATIENT
  Age: 43 Year
  Sex: Male
  Weight: 88 kg

DRUGS (3)
  1. ADALIMUMAB [Concomitant]
  2. REMICADE [Suspect]
     Route: 042
  3. REMICADE [Suspect]
     Indication: CROHN'S DISEASE
     Route: 042

REACTIONS (2)
  - ILEECTOMY [None]
  - NEPHROLITHIASIS [None]
